FAERS Safety Report 4687009-8 (Version None)
Quarter: 2005Q2

REPORT INFORMATION
  Report Type: 
  Country: None (occurrence: None)
  Receive Date: 20050606
  Receipt Date: 20050523
  Transmission Date: 20051028
  Serious: No
  Sender: FDA-Public Use
  Company Number: USA050598731

PATIENT
  Age: 45 Year
  Sex: Female

DRUGS (3)
  1. CYMBALTA [Suspect]
     Dosage: 60 MG DAY
     Dates: start: 20050401
  2. LAMICTAL [Concomitant]
  3. KLONOPIN [Concomitant]

REACTIONS (4)
  - FATIGUE [None]
  - HEPATOMEGALY [None]
  - KIDNEY ENLARGEMENT [None]
  - URINARY TRACT DISORDER [None]
